FAERS Safety Report 20078393 (Version 1)
Quarter: 2021Q4

REPORT INFORMATION
  Report Type: Spontaneous
  Country: MA (occurrence: MA)
  Receive Date: 20211117
  Receipt Date: 20211117
  Transmission Date: 20220303
  Serious: Yes (Hospitalization)
  Sender: FDA-Public Use
  Company Number: MA-LUPIN PHARMACEUTICALS INC.-2021-22366

PATIENT
  Age: 33 Year
  Sex: Female

DRUGS (12)
  1. ATORVASTATIN CALCIUM [Suspect]
     Active Substance: ATORVASTATIN CALCIUM
     Indication: Hypertriglyceridaemia
     Dosage: 40 MILLIGRAM, QD
     Route: 065
  2. ATORVASTATIN CALCIUM [Suspect]
     Active Substance: ATORVASTATIN CALCIUM
     Indication: Pancreatitis acute
  3. FENOFIBRATE [Suspect]
     Active Substance: FENOFIBRATE
     Indication: Hypertriglyceridaemia
     Dosage: 145 MILLIGRAM, QD
     Route: 065
  4. FENOFIBRATE [Suspect]
     Active Substance: FENOFIBRATE
     Indication: Pancreatitis acute
  5. ASPIRIN [Suspect]
     Active Substance: ASPIRIN
     Indication: Hypertriglyceridaemia
     Dosage: 100 MILLIGRAM, QD
     Route: 065
  6. ASPIRIN [Suspect]
     Active Substance: ASPIRIN
     Indication: Pancreatitis acute
  7. SODIUM CHLORIDE [Concomitant]
     Active Substance: SODIUM CHLORIDE
     Indication: Hypertriglyceridaemia
     Dosage: 135 MILLILITER (CONTINUOUS INFUSION FOR 24 HOURS)
     Route: 065
  8. SODIUM CHLORIDE [Concomitant]
     Active Substance: SODIUM CHLORIDE
     Indication: Pancreatitis acute
  9. INSULIN NOS [Concomitant]
     Active Substance: INSULIN NOS
     Indication: Hypertriglyceridaemia
     Dosage: 0.05 INTERNATIONAL UNIT/KILOGRAM
     Route: 065
  10. INSULIN NOS [Concomitant]
     Active Substance: INSULIN NOS
     Indication: Pancreatitis acute
  11. HEPARIN [Concomitant]
     Active Substance: HEPARIN SODIUM
     Indication: Hypertriglyceridaemia
     Dosage: UNK
     Route: 065
  12. HEPARIN [Concomitant]
     Active Substance: HEPARIN SODIUM
     Indication: Pancreatitis acute

REACTIONS (2)
  - Drug ineffective [Unknown]
  - Drug ineffective for unapproved indication [Unknown]
